FAERS Safety Report 14805370 (Version 1)
Quarter: 2018Q1

REPORT INFORMATION
  Report Type: Spontaneous
  Country: US (occurrence: US)
  Receive Date: 20180330
  Receipt Date: 20180330
  Transmission Date: 20180509
  Serious: Yes (Life-Threatening, Hospitalization)
  Sender: FDA-Public Use
  Company Number: None

PATIENT
  Age: 62 Year
  Sex: Male

DRUGS (3)
  1. ONDANSETRON [Concomitant]
     Active Substance: ONDANSETRON
  2. SULFAMETHOXAZOLE-TRIMETHOPRIM [Concomitant]
     Active Substance: SULFAMETHOXAZOLE\TRIMETHOPRIM
  3. POSACONAZOLE [Suspect]
     Active Substance: POSACONAZOLE
     Indication: FUNGAL INFECTION
     Route: 048
     Dates: start: 20170625, end: 20170709

REACTIONS (2)
  - Torsade de pointes [None]
  - Loss of consciousness [None]

NARRATIVE: CASE EVENT DATE: 20170709
